FAERS Safety Report 9664647 (Version 1)
Quarter: 2013Q4

REPORT INFORMATION
  Report Type: Spontaneous
  Country: US (occurrence: None)
  Receive Date: 20131031
  Receipt Date: 20131031
  Transmission Date: 20140711
  Serious: Yes (Other)
  Sender: FDA-Public Use
  Company Number: None

PATIENT
  Age: 21 Year
  Sex: Male
  Weight: 54.43 kg

DRUGS (1)
  1. HALDOL [Suspect]
     Indication: MENTAL DISORDER
     Dosage: 1 THREE TIMES DAILY
     Dates: start: 20131025

REACTIONS (5)
  - Swelling [None]
  - Dyspnoea [None]
  - Visual impairment [None]
  - Decreased appetite [None]
  - Dyskinesia [None]
